FAERS Safety Report 5290568-8 (Version None)
Quarter: 2007Q2

REPORT INFORMATION
  Report Type: 
  Country: None (occurrence: None)
  Receive Date: 20070405
  Receipt Date: 20070405
  Transmission Date: 20071010
  Serious: Yes (Hospitalization)
  Sender: FDA-Public Use
  Company Number: None

PATIENT
  Sex: Male
  Weight: 79.5 kg

DRUGS (1)
  1. PEG-INTRON [Suspect]
     Dosage: 41.3 MG

REACTIONS (1)
  - ANAEMIA [None]
